FAERS Safety Report 9175419 (Version 1)
Quarter: 2013Q1

REPORT INFORMATION
  Report Type: Spontaneous
  Country: US (occurrence: US)
  Receive Date: 20130320
  Receipt Date: 20130320
  Transmission Date: 20140127
  Serious: Yes (Other)
  Sender: FDA-Public Use
  Company Number: PHEH2013US006257

PATIENT
  Sex: Male
  Weight: 100.68 kg

DRUGS (6)
  1. AFINITOR [Suspect]
     Indication: BREAST CANCER
     Dosage: 10 MG, DAILY
     Route: 048
  2. TAMOXIFEN [Concomitant]
     Dosage: 10 MG, UNK
  3. COUMADINE [Concomitant]
     Dosage: 25 MG, UNK
  4. VICODIN [Concomitant]
     Dosage: 5-300 MG, UNK
  5. FENTANYL [Concomitant]
     Dosage: 25 UG/HR, UNK
  6. FLOMAX ^BOEHRINGER INGELHEIM^ [Concomitant]
     Dosage: 0.4 MG, UNK

REACTIONS (6)
  - Neuropathy peripheral [Unknown]
  - Concomitant disease aggravated [Unknown]
  - Eating disorder [Unknown]
  - Weight decreased [Unknown]
  - Nausea [Unknown]
  - Fatigue [Unknown]
